FAERS Safety Report 9536934 (Version 1)
Quarter: 2013Q3

REPORT INFORMATION
  Report Type: Report from Study
  Country: JP (occurrence: JP)
  Receive Date: 20130919
  Receipt Date: 20130919
  Transmission Date: 20140515
  Serious: Yes (Hospitalization)
  Sender: FDA-Public Use
  Company Number: JP-NOVOPROD-387525

PATIENT
  Age: 63 Year
  Sex: Male
  Weight: 89 kg

DRUGS (8)
  1. LIRAGLUTIDE FLEXPEN [Suspect]
     Indication: TYPE 2 DIABETES MELLITUS
     Dosage: 0.3 MG, QD, MORNING
     Route: 058
     Dates: start: 20120119
  2. LIRAGLUTIDE FLEXPEN [Suspect]
     Dosage: 0.6 MG, QD
     Route: 058
     Dates: start: 20120202
  3. LIRAGLUTIDE FLEXPEN [Suspect]
     Dosage: 0.9 MG, QD EVENING
     Route: 058
     Dates: start: 20120308, end: 201204
  4. LIRAGLUTIDE FLEXPEN [Suspect]
     Dosage: 0.3 MG, QD EVENING
     Route: 058
     Dates: start: 20120430
  5. LIRAGLUTIDE FLEXPEN [Suspect]
     Dosage: 0.9 MG, QD
     Route: 058
     Dates: start: 20120517
  6. AMARYL [Concomitant]
     Indication: TYPE 2 DIABETES MELLITUS
     Dosage: 1 MG, QD
     Route: 048
     Dates: start: 20110101
  7. NORVASC [Concomitant]
     Route: 048
  8. IRBETAN [Concomitant]
     Route: 048

REACTIONS (1)
  - Cholecystitis acute [Recovered/Resolved]
